FAERS Safety Report 11715183 (Version 3)
Quarter: 2016Q1

REPORT INFORMATION
  Report Type: Spontaneous
  Country: DE (occurrence: DE)
  Receive Date: 20151109
  Receipt Date: 20160106
  Transmission Date: 20160525
  Serious: Yes (Other)
  Sender: FDA-Public Use
  Company Number: DE-EISAI MEDICAL RESEARCH-EC-2015-011748

PATIENT
  Sex: Female
  Weight: 17 kg

DRUGS (6)
  1. ZONEGRAN [Concomitant]
     Active Substance: ZONISAMIDE
     Indication: EPILEPSY
     Dosage: UNKNOWN
     Route: 048
  2. FYCOMPA [Suspect]
     Active Substance: PERAMPANEL
     Dosage: 4MG/6MG ALTERNATING EVERY 5 DAYS
     Route: 048
     Dates: start: 201511
  3. CLOBAZAM [Concomitant]
     Active Substance: CLOBAZAM
     Indication: EPILEPSY
     Dosage: UNKNOWN
     Route: 065
  4. FYCOMPA [Suspect]
     Active Substance: PERAMPANEL
     Dosage: UPTITRATED TO 6 MG
     Route: 048
     Dates: start: 201510, end: 201511
  5. FYCOMPA [Suspect]
     Active Substance: PERAMPANEL
     Indication: EPILEPSY
     Route: 048
     Dates: end: 201510
  6. ETHOSUXIMIDE. [Concomitant]
     Active Substance: ETHOSUXIMIDE
     Indication: EPILEPSY
     Dosage: UNKNOWN
     Route: 065

REACTIONS (2)
  - Off label use [Recovering/Resolving]
  - Atonic seizures [Recovering/Resolving]

NARRATIVE: CASE EVENT DATE: 201510
